FAERS Safety Report 18217786 (Version 1)
Quarter: 2020Q3

REPORT INFORMATION
  Report Type: Spontaneous
  Country: US (occurrence: US)
  Receive Date: 20200831
  Receipt Date: 20200831
  Transmission Date: 20201103
  Serious: Yes (Life-Threatening, Hospitalization)
  Sender: FDA-Public Use
  Company Number: None

PATIENT
  Age: 81 Year
  Sex: Male
  Weight: 71.99 kg

DRUGS (1)
  1. WARFARIN (WARFARIN NA (EXELAN) 4MG TAB) [Suspect]
     Active Substance: WARFARIN SODIUM
     Indication: ATRIAL FIBRILLATION
     Dates: start: 20150515, end: 20180213

REACTIONS (2)
  - Subdural haematoma [None]
  - Cerebral haematoma [None]

NARRATIVE: CASE EVENT DATE: 20180213
